FAERS Safety Report 7502013-X (Version None)
Quarter: 2011Q2

REPORT INFORMATION
  Report Type: 
  Country: None (occurrence: None)
  Receive Date: 20110523
  Receipt Date: 20110523
  Transmission Date: 20111010
  Serious: Yes (Hospitalization)
  Sender: FDA-Public Use
  Company Number: None

PATIENT
  Age: 66 Year
  Sex: Female
  Weight: 61.2356 kg

DRUGS (1)
  1. RECLAST [Suspect]
     Indication: OSTEOPOROSIS
     Dosage: 1 INTRAVENOUS DOSE AT HOSP.
     Route: 042
     Dates: start: 20110408

REACTIONS (4)
  - CONFUSIONAL STATE [None]
  - PAIN [None]
  - HALLUCINATION [None]
  - DISORIENTATION [None]
